FAERS Safety Report 7230600 (Version 9)
Quarter: 2014Q4

REPORT INFORMATION
  Report Type: Spontaneous
  Country: US (occurrence: US)
  Receive Date: 20091225
  Receipt Date: 20141208
  Transmission Date: 20150529
  Serious: Yes (Other)
  Sender: FDA-Public Use
  Company Number: US-BAYER-200941068NA

PATIENT
  Age: 35 Year
  Sex: Female
  Weight: 60 kg

DRUGS (6)
  1. IBUPROFEN. [Concomitant]
     Active Substance: IBUPROFEN
  2. TEGRETOL [Concomitant]
     Active Substance: CARBAMAZEPINE
     Dosage: 200 MG, UNK
  3. ACYCLOVIR [ACICLOVIR] [Concomitant]
     Active Substance: ACYCLOVIR
  4. MIRENA [Suspect]
     Active Substance: LEVONORGESTREL
     Indication: CONTRACEPTION
     Dosage: 20 MCG/24HR, CONT
     Route: 015
     Dates: start: 20090115, end: 20101119
  5. CALCIUM [Concomitant]
     Active Substance: CALCIUM
     Dosage: UNK UNK, QD
     Route: 048
  6. TEGRETOL [Concomitant]
     Active Substance: CARBAMAZEPINE
     Dosage: 200 MG, BID

REACTIONS (13)
  - Amenorrhoea [None]
  - Drug diversion [None]
  - Uterine perforation [Recovered/Resolved]
  - Nausea [None]
  - Emotional distress [None]
  - Drug ineffective [None]
  - Bipolar disorder [None]
  - Device issue [Recovered/Resolved]
  - Device dislocation [Recovered/Resolved]
  - Depression [None]
  - Pain [Recovered/Resolved]
  - Injury [None]
  - Pregnancy with contraceptive device [None]

NARRATIVE: CASE EVENT DATE: 200909
